FAERS Safety Report 4899046-9 (Version None)
Quarter: 2006Q1

REPORT INFORMATION
  Report Type: 
  Country: None (occurrence: None)
  Receive Date: 20060202
  Receipt Date: 20060124
  Transmission Date: 20060701
  Serious: Yes (Hospitalization, Disabling)
  Sender: FDA-Public Use
  Company Number: JP-BRISTOL-MYERS SQUIBB COMPANY-13264981

PATIENT
  Age: 59 Year
  Sex: Male

DRUGS (6)
  1. EFAVIRENZ [Suspect]
     Indication: HIV INFECTION
     Route: 048
     Dates: start: 20030227
  2. EPIVIR [Suspect]
     Indication: HIV INFECTION
     Dosage: THERAPY STOPPED ON 24-MAY-1999 AND RE-STARTED ON 18-JUN-2004.
     Route: 048
     Dates: start: 19981101
  3. VIREAD [Suspect]
     Indication: HIV INFECTION
     Route: 048
     Dates: start: 20040618
  4. VIDEX EC [Concomitant]
     Dates: start: 20010401, end: 20040617
  5. ZERIT [Concomitant]
     Dates: start: 19990525, end: 20040617
  6. BUFFERIN [Concomitant]
     Dates: start: 20040618

REACTIONS (2)
  - CEREBELLAR INFARCTION [None]
  - FEMORAL NECK FRACTURE [None]
